FAERS Safety Report 4990034-0 (Version None)
Quarter: 2006Q2

REPORT INFORMATION
  Report Type: 
  Country: None (occurrence: None)
  Receive Date: 20060427
  Receipt Date: 20060413
  Transmission Date: 20061013
  Serious: Yes (Hospitalization)
  Sender: FDA-Public Use
  Company Number: MEDI-0004443(0)

PATIENT
  Age: 5 Month
  Weight: 3.9 kg

DRUGS (5)
  1. SYNAGIS [Suspect]
     Indication: ANTIVIRAL PROPHYLAXIS
     Dosage: 60 MG, 1 IN 30 D, INTRAMUSCULAR, SEE IMAGE
     Route: 030
     Dates: start: 20051025, end: 20051130
  2. SYNAGIS [Suspect]
     Indication: ANTIVIRAL PROPHYLAXIS
     Dosage: 60 MG, 1 IN 30 D, INTRAMUSCULAR, SEE IMAGE
     Route: 030
     Dates: start: 20060313, end: 20060313
  3. SYNAGIS [Suspect]
     Indication: ANTIVIRAL PROPHYLAXIS
     Dosage: 60 MG, 1 IN 30 D, INTRAMUSCULAR, SEE IMAGE
     Route: 030
     Dates: start: 20051025
  4. SYNAGIS [Suspect]
     Indication: ANTIVIRAL PROPHYLAXIS
     Dosage: 60 MG, 1 IN 30 D, INTRAMUSCULAR, SEE IMAGE
     Route: 030
     Dates: start: 20060112
  5. SYNAGIS [Suspect]
     Indication: ANTIVIRAL PROPHYLAXIS
     Dosage: 60 MG, 1 IN 30 D, INTRAMUSCULAR, SEE IMAGE
     Route: 030
     Dates: start: 20060213

REACTIONS (1)
  - BRONCHIOLITIS [None]
